FAERS Safety Report 6786478-7 (Version None)
Quarter: 2010Q2

REPORT INFORMATION
  Report Type: 
  Country: None (occurrence: None)
  Receive Date: 20100623
  Receipt Date: 20100614
  Transmission Date: 20101027
  Serious: Yes (Death, Hospitalization)
  Sender: FDA-Public Use
  Company Number: B0600019A

PATIENT
  Sex: Female
  Weight: 45 kg

DRUGS (25)
  1. MELPHALAN HYDROCHLORIDE [Suspect]
     Indication: MULTIPLE MYELOMA
     Dosage: .1MGK PER DAY
     Dates: start: 20090910, end: 20091029
  2. PREDNISONE [Suspect]
     Indication: MULTIPLE MYELOMA
     Dates: start: 20090910, end: 20091029
  3. THALIDOMIDE [Suspect]
     Indication: MULTIPLE MYELOMA
     Dosage: 100MG PER DAY
     Route: 048
     Dates: start: 20090910, end: 20091102
  4. KARDEGIC [Concomitant]
     Dosage: 160MG PER DAY
     Route: 048
  5. DURAGESIC-100 [Concomitant]
     Indication: BONE PAIN
     Dates: start: 20090822
  6. DOLIPRANE [Concomitant]
     Indication: BONE PAIN
     Dosage: 4G FOUR TIMES PER DAY
     Route: 048
     Dates: start: 20090822
  7. BLOOD CELLS [Concomitant]
     Indication: DRUG USE FOR UNKNOWN INDICATION
     Route: 042
  8. SODIUM CHLORIDE [Concomitant]
  9. ASPEGIC 1000 [Concomitant]
  10. CEFTAZIDIME [Concomitant]
  11. UNKNOWN [Concomitant]
     Route: 042
  12. PERFALGAN [Concomitant]
  13. CALCIPARINE [Concomitant]
  14. CARDENSIEL [Concomitant]
  15. CIPROFLOXACIN [Concomitant]
  16. FORLAX [Concomitant]
  17. NEXIUM [Concomitant]
  18. INIPOMP [Concomitant]
  19. LASIX [Concomitant]
  20. SPECIAFOLDINE [Concomitant]
  21. SODIUM CARBONATE [Concomitant]
     Route: 042
  22. DIFFU-K [Concomitant]
  23. IMIPENEM AND CILASTATIN [Concomitant]
  24. SERESTA [Concomitant]
  25. ACTISKENAN [Concomitant]

REACTIONS (3)
  - FATIGUE [None]
  - GENERAL PHYSICAL HEALTH DETERIORATION [None]
  - MALNUTRITION [None]
